FAERS Safety Report 6337647-1 (Version None)
Quarter: 2009Q3

REPORT INFORMATION
  Report Type: 
  Country: None (occurrence: None)
  Receive Date: 20090902
  Receipt Date: 20090819
  Transmission Date: 20100115
  Serious: Yes (Other)
  Sender: FDA-Public Use
  Company Number: US-SOLVAY-00309004804

PATIENT
  Sex: Male

DRUGS (2)
  1. TRIAMCINOLONE ACETONIDE [Concomitant]
     Indication: SKIN IRRITATION
     Dosage: DAILY DOSE:  UNKNOWN
     Route: 061
  2. TESTOSTERONE [Suspect]
     Indication: PROSTATE CANCER
     Dosage: DAILY DOSE: 7.5 MILLIGRAM(S), FORM: PATCHES
     Route: 062

REACTIONS (1)
  - MYOCARDIAL INFARCTION [None]
